FAERS Safety Report 24646097 (Version 1)
Quarter: 2024Q4

REPORT INFORMATION
  Report Type: Spontaneous
  Country: US (occurrence: US)
  Receive Date: 20241121
  Receipt Date: 20241121
  Transmission Date: 20250115
  Serious: No
  Sender: COLLEGIUM PHARMACEUTICAL
  Company Number: US-COLLEGIUM PHARMACEUTICAL, INC.-20241000841

PATIENT

DRUGS (2)
  1. BELBUCA [Suspect]
     Active Substance: BUPRENORPHINE HYDROCHLORIDE
     Indication: Pain
     Dosage: 300 MICROGRAM, BID
     Route: 002
     Dates: start: 2023
  2. BELBUCA [Suspect]
     Active Substance: BUPRENORPHINE HYDROCHLORIDE
     Dosage: 150 MICROGRAM, UNKNOWN
     Route: 002

REACTIONS (4)
  - Back pain [Unknown]
  - Dizziness [Unknown]
  - Incorrect dose administered [Unknown]
  - Product commingling [Unknown]
